FAERS Safety Report 8464246-8 (Version None)
Quarter: 2012Q2

REPORT INFORMATION
  Report Type: 
  Country: None (occurrence: None)
  Receive Date: 20120625
  Receipt Date: 20120614
  Transmission Date: 20120825
  Serious: Yes (Other)
  Sender: FDA-Public Use
  Company Number: GB-FRI-1000030358

PATIENT
  Age: 50 Year
  Sex: Female

DRUGS (8)
  1. ALVERINE CITRATE [Concomitant]
  2. BECLOMETHASONE DIPROPIONATE [Concomitant]
  3. BUSPIRONE HCL [Concomitant]
  4. TEGRETOL [Concomitant]
  5. CITALOPRAM HYDROBROMIDE [Suspect]
     Indication: ANXIETY
     Dosage: 20 MG
     Route: 048
     Dates: start: 20120403, end: 20120403
  6. OMEPRAZOLE [Concomitant]
  7. ACETAMINOPHEN AND CODEINE PHOSPHATE [Concomitant]
  8. ESTRADIOL [Concomitant]

REACTIONS (2)
  - MUSCLE RIGIDITY [None]
  - VOMITING [None]
